FAERS Safety Report 12393326 (Version 1)
Quarter: 2016Q2

REPORT INFORMATION
  Report Type: Spontaneous
  Country: CA (occurrence: CA)
  Receive Date: 20160523
  Receipt Date: 20160523
  Transmission Date: 20160815
  Serious: Yes (Other)
  Sender: FDA-Public Use
  Company Number: CA-JNJFOC-20160517529

PATIENT
  Age: 41 Year
  Sex: Male
  Weight: 154 kg

DRUGS (9)
  1. METFORMIN [Concomitant]
     Active Substance: METFORMIN HYDROCHLORIDE
     Route: 065
  2. VITAMIN D [Concomitant]
     Active Substance: CHOLECALCIFEROL
     Route: 065
  3. CEFIXIME. [Concomitant]
     Active Substance: CEFIXIME
     Route: 065
  4. FLAGYL [Concomitant]
     Active Substance: METRONIDAZOLE\METRONIDAZOLE HYDROCHLORIDE
     Route: 065
  5. INVOKANA [Suspect]
     Active Substance: CANAGLIFLOZIN
     Indication: TYPE 2 DIABETES MELLITUS
     Dosage: THERAPY DURATION: 41 DAYS
     Route: 048
  6. GLYBURIDE. [Concomitant]
     Active Substance: GLYBURIDE
     Route: 065
  7. LIPITOR [Concomitant]
     Active Substance: ATORVASTATIN CALCIUM
     Route: 065
  8. DILAUDID [Concomitant]
     Active Substance: HYDROMORPHONE HYDROCHLORIDE
     Route: 065
  9. OLMETEC [Concomitant]
     Active Substance: OLMESARTAN MEDOXOMIL
     Route: 065

REACTIONS (4)
  - Necrotising fasciitis [Recovered/Resolved]
  - Ketonuria [Recovered/Resolved]
  - Hyperglycaemia [Recovered/Resolved]
  - Acidosis [Recovered/Resolved]
